FAERS Safety Report 8768133 (Version 1)
Quarter: 2012Q4

REPORT INFORMATION
  Report Type: 
  Country: US (occurrence: US)
  Receive Date: 20120905
  Receipt Date: 20120905
  Transmission Date: 20130627
  Serious: Yes (Hospitalization)
  Sender: FDA-Public Use
  Company Number: US-GLAXOSMITHKLINE-A0861774A

PATIENT
  Age: 42 Year
  Sex: Female

DRUGS (1)
  1. AVANDIA [Suspect]
     Indication: DIABETES MELLITUS
     Dosage: 2MG Per day
     Route: 048
     Dates: start: 200401, end: 2007

REACTIONS (3)
  - Cardiac failure congestive [Not Recovered/Not Resolved]
  - Weight increased [Unknown]
  - Cardiac disorder [Unknown]
